FAERS Safety Report 16687592 (Version 8)
Quarter: 2019Q4

REPORT INFORMATION
  Report Type: Spontaneous
  Country: US (occurrence: US)
  Receive Date: 20190809
  Receipt Date: 20191226
  Transmission Date: 20200122
  Serious: No
  Sender: FDA-Public Use
  Company Number: US-PFIZER INC-2019338931

PATIENT
  Age: 74 Year
  Sex: Male
  Weight: 129.27 kg

DRUGS (4)
  1. LYRICA [Suspect]
     Active Substance: PREGABALIN
     Indication: PAIN IN EXTREMITY
     Dosage: 500 MG, DAILY (TAKE 200MG IN THE MORNING AND 300MG AT NIGHT)
  2. LYRICA [Suspect]
     Active Substance: PREGABALIN
     Indication: DIABETIC NEUROPATHY
     Dosage: 300 MG, DAILY (100MG IN THE MORNING THEN 200MG AT NIGHT)
  3. CELEBREX [Concomitant]
     Active Substance: CELECOXIB
     Dosage: UNK
  4. LYRICA [Suspect]
     Active Substance: PREGABALIN
     Dosage: 600 MG, DAILY (LYRICA 200 MG MORNING AND 400 MG QHS (EVERY BEDTIME)
     Dates: start: 20190820

REACTIONS (5)
  - Therapeutic response unexpected [Unknown]
  - Intentional product misuse [Unknown]
  - Paraesthesia [Unknown]
  - Pain [Unknown]
  - Pre-existing condition improved [Unknown]
